FAERS Safety Report 5253437-5 (Version None)
Quarter: 2007Q1

REPORT INFORMATION
  Report Type: 
  Country: None (occurrence: None)
  Receive Date: 20070301
  Receipt Date: 20070220
  Transmission Date: 20070707
  Serious: Yes (Hospitalization)
  Sender: FDA-Public Use
  Company Number: US-SHR-US-2006-035923

PATIENT
  Age: 52 Year
  Sex: Female
  Weight: 68 kg

DRUGS (23)
  1. BETASERON [Suspect]
     Indication: RELAPSING-REMITTING MULTIPLE SCLEROSIS
     Dosage: 8 MIU, EVERY 2D
     Route: 058
     Dates: start: 20040519
  2. LIPITOR                                 /NET/ [Concomitant]
     Dosage: 80 MG, 1X/DAY
  3. METOPROLOL SUCCINATE [Concomitant]
     Dosage: 25 MG, 2X/DAY
  4. PAROXETINE HCL [Concomitant]
     Dosage: 20 MG, 1X/DAY
  5. BENAZEPRIL HYDROCHLORIDE [Concomitant]
     Dosage: 5 MG, 1X/DAY
  6. OMEPRAZOLE [Concomitant]
     Dosage: 20 MG, 1X/DAY
  7. METFORMIN HCL [Concomitant]
     Indication: INSULIN RESISTANT DIABETES
     Dosage: 500 MG, 1X/DAY
  8. IMDUR [Concomitant]
     Dosage: 15 MG, 2X/DAY
  9. ACTOS                                   /USA/ [Concomitant]
     Dosage: 7.5 MG, 1X/DAY
  10. ZETIA [Concomitant]
     Dosage: 10 MG, 1X/DAY
  11. ASPIRIN [Concomitant]
     Dosage: 325 MG, 1X/DAY
  12. ASCORBIC ACID [Concomitant]
     Dosage: 500 MG, 1X/DAY
  13. PRILOSEC [Concomitant]
     Dosage: 20 UNK, 1X/DAY
  14. PROPRANOLOL [Concomitant]
     Dosage: 40 UNK, 1X/DAY/IN THE MORNING
  15. PROPRANOLOL [Concomitant]
     Dosage: 20 UNK, 1X/DAY/IN THE NIGHT
  16. PAXIL [Concomitant]
     Dosage: 20 UNK, 1X/DAY
  17. PLAVIX [Concomitant]
     Dosage: 75 UNK, 1X/DAY
     Dates: end: 20061001
  18. CELEBREX [Concomitant]
     Dosage: 200 UNK, 1X/DAY
  19. ZOCOR [Concomitant]
     Dosage: 40 UNK, 1X/DAY
  20. TRICOR [Concomitant]
     Dosage: 145 UNK, UNK
     Dates: start: 20051001, end: 20060301
  21. LOTENSIN [Concomitant]
     Dates: start: 20051001
  22. NITROGLYCERIN [Concomitant]
     Dosage: UNK, AS REQ'D
     Route: 048
  23. ASCORBIC ACID [Concomitant]
     Dosage: 500 MG, 1X/DAY

REACTIONS (17)
  - ANGINA PECTORIS [None]
  - AORTIC ANEURYSM [None]
  - ARTHRALGIA [None]
  - CAROTID ARTERIOSCLEROSIS [None]
  - CAROTID ARTERY STENOSIS [None]
  - CORONARY ARTERY DISEASE [None]
  - CORONARY ARTERY OCCLUSION [None]
  - DIZZINESS [None]
  - DRY SKIN [None]
  - FATIGUE [None]
  - HYPOAESTHESIA [None]
  - INCREASED TENDENCY TO BRUISE [None]
  - INSULIN RESISTANT DIABETES [None]
  - MITRAL VALVE INCOMPETENCE [None]
  - NASOPHARYNGITIS [None]
  - VENTRICULAR DYSFUNCTION [None]
  - VENTRICULAR HYPOKINESIA [None]
